FAERS Safety Report 23209845 (Version 1)
Quarter: 2023Q4

REPORT INFORMATION
  Report Type: Report from Study
  Country: IN (occurrence: IN)
  Receive Date: 20231121
  Receipt Date: 20231121
  Transmission Date: 20240109
  Serious: Yes (Other)
  Sender: FDA-Public Use
  Company Number: IN-SANDOZ-SDZ2023IN056085

PATIENT
  Sex: Male

DRUGS (2)
  1. TACROLIMUS [Suspect]
     Active Substance: TACROLIMUS
     Indication: Product used for unknown indication
     Dosage: 2 MG, QD (1 MG, BID)
     Route: 048
  2. MYFORTIC [Suspect]
     Active Substance: MYCOPHENOLATE SODIUM
     Indication: Product used for unknown indication
     Dosage: 1080 MG, QD (360 MG, TID)
     Route: 048

REACTIONS (6)
  - Transplant dysfunction [Unknown]
  - Oedema peripheral [Unknown]
  - Albuminuria [Unknown]
  - Vital functions abnormal [Unknown]
  - Blood creatinine increased [Unknown]
  - Blood pressure increased [Unknown]
